FAERS Safety Report 7018866-8 (Version None)
Quarter: 2010Q3

REPORT INFORMATION
  Report Type: 
  Country: None (occurrence: None)
  Receive Date: 20100928
  Receipt Date: 20100917
  Transmission Date: 20110219
  Serious: Yes (Other)
  Sender: FDA-Public Use
  Company Number: US-PFIZER INC-2010103885

PATIENT
  Age: 75 Year
  Sex: Male

DRUGS (4)
  1. LYRICA [Suspect]
     Indication: RADICULOPATHY
     Dosage: 75 MG, 2X/DAY
     Dates: start: 20080301, end: 20090101
  2. INDERAL [Concomitant]
     Indication: MIGRAINE
     Route: 048
  3. LIPITOR [Concomitant]
     Indication: HYPERCHOLESTEROLAEMIA
     Route: 048
  4. ACETYLSALICYLIC ACID [Concomitant]
     Dosage: 81 MG, UNK
     Route: 048

REACTIONS (1)
  - DEMENTIA ALZHEIMER'S TYPE [None]
